FAERS Safety Report 5913716-2 (Version None)
Quarter: 2008Q4

REPORT INFORMATION
  Report Type: 
  Country: None (occurrence: None)
  Receive Date: 20081007
  Receipt Date: 20080922
  Transmission Date: 20090506
  Serious: Yes (Death)
  Sender: FDA-Public Use
  Company Number: 08-220

PATIENT
  Sex: Male

DRUGS (12)
  1. FAZACLO ODT [Suspect]
     Dosage: 300 MG DAILY PO
     Route: 048
     Dates: start: 20080401, end: 20080801
  2. DEPAKOTE ER [Concomitant]
  3. FLEXERIL [Concomitant]
  4. PREDNISONE TAB [Concomitant]
  5. METHOTREXATE [Concomitant]
  6. SEROQUEL [Concomitant]
  7. TRAZODONE HCL [Concomitant]
  8. FOLIC ACID [Concomitant]
  9. PROPRANOLOL [Concomitant]
  10. AMBIEN [Concomitant]
  11. PROZAC [Concomitant]
  12. ENBREL [Concomitant]

REACTIONS (1)
  - DEATH [None]
